FAERS Safety Report 5948864-4 (Version None)
Quarter: 2008Q4

REPORT INFORMATION
  Report Type: 
  Country: None (occurrence: None)
  Receive Date: 20081111
  Receipt Date: 20080818
  Transmission Date: 20090506
  Serious: No
  Sender: FDA-Public Use
  Company Number: US-BRISTOL-MYERS SQUIBB COMPANY-14305965

PATIENT
  Age: 51 Year
  Sex: Male
  Weight: 79 kg

DRUGS (10)
  1. SUSTIVA [Suspect]
     Indication: HIV INFECTION
     Dates: start: 20080814
  2. DURAGESIC-100 [Concomitant]
  3. LAMISIL [Concomitant]
     Dosage: TABLET
  4. PROVIGIL [Concomitant]
  5. LEVOTHROID [Concomitant]
  6. TRUVADA [Concomitant]
  7. XANAX [Concomitant]
  8. LEVITRA [Concomitant]
  9. NORVIR [Concomitant]
  10. REYATAZ [Concomitant]

REACTIONS (5)
  - ABDOMINAL PAIN [None]
  - ANXIETY [None]
  - DIARRHOEA [None]
  - FATIGUE [None]
  - INSOMNIA [None]
